FAERS Safety Report 4617989-8 (Version None)
Quarter: 2005Q1

REPORT INFORMATION
  Report Type: 
  Country: None (occurrence: None)
  Receive Date: 20050322
  Receipt Date: 20050310
  Transmission Date: 20050727
  Serious: No
  Sender: FDA-Public Use
  Company Number: 2005SE00783

PATIENT
  Sex: Male
  Weight: 75 kg

DRUGS (7)
  1. SEROQUEL [Suspect]
     Indication: DRUG RESISTANCE
     Dosage: 200 MG DAILY PO
     Route: 048
     Dates: start: 20041108, end: 20041201
  2. SEROQUEL [Suspect]
     Indication: MAJOR DEPRESSION
     Dosage: 200 MG DAILY PO
     Route: 048
     Dates: start: 20041108, end: 20041201
  3. SEROQUEL [Suspect]
     Indication: DRUG RESISTANCE
     Dosage: 100 MG DAILY PO
     Route: 048
     Dates: start: 20041201
  4. SEROQUEL [Suspect]
     Indication: MAJOR DEPRESSION
     Dosage: 100 MG DAILY PO
     Route: 048
     Dates: start: 20041201
  5. EFFEXOR XR [Concomitant]
  6. LAMICTAL [Concomitant]
  7. ACURATE [Concomitant]

REACTIONS (2)
  - BRONCHOSPASM [None]
  - DYSPNOEA [None]
